FAERS Safety Report 8763328 (Version 1)
Quarter: 2012Q4

REPORT INFORMATION
  Report Type: 
  Country: US (occurrence: US)
  Receive Date: 20120831
  Receipt Date: 20120831
  Transmission Date: 20130627
  Serious: No
  Sender: FDA-Public Use
  Company Number: US-PFIZER INC-2012210594

PATIENT
  Age: 65 Year
  Sex: Male

DRUGS (2)
  1. ADVIL [Suspect]
     Dosage: UNK
     Route: 048
  2. ADVIL [Suspect]
     Dosage: 12 liquigels in a day

REACTIONS (2)
  - Overdose [Unknown]
  - Blood sodium decreased [Unknown]
